FAERS Safety Report 15765072 (Version 2)
Quarter: 2019Q1

REPORT INFORMATION
  Report Type: Spontaneous
  Country: US (occurrence: US)
  Receive Date: 20181227
  Receipt Date: 20190102
  Transmission Date: 20190417
  Serious: Yes (Disabling)
  Sender: FDA-Public Use
  Company Number: US-GBPHLPEH-2018-PEL-003463

PATIENT

DRUGS (3)
  1. LIORESAL [Concomitant]
     Active Substance: BACLOFEN
     Dosage: 500 MICROGRAM, QD
     Route: 037
  2. GABLOFEN [Suspect]
     Active Substance: BACLOFEN
     Indication: PRODUCT USED FOR UNKNOWN INDICATION
     Dosage: 455 MICROGRAM, QD
     Route: 037
  3. LIORESAL [Concomitant]
     Active Substance: BACLOFEN
     Indication: PRODUCT USED FOR UNKNOWN INDICATION
     Dosage: 300 MICROGRAM, QD
     Route: 037

REACTIONS (4)
  - Muscle spasms [Recovered/Resolved]
  - Muscle spasticity [Recovered/Resolved]
  - Device issue [Recovered/Resolved]
  - Device inversion [Recovered/Resolved]

NARRATIVE: CASE EVENT DATE: 201803
